FAERS Safety Report 5781266-2 (Version None)
Quarter: 2008Q2

REPORT INFORMATION
  Report Type: 
  Country: None (occurrence: None)
  Receive Date: 20080623
  Receipt Date: 20080611
  Transmission Date: 20081010
  Serious: Yes (Hospitalization, Other)
  Sender: FDA-Public Use
  Company Number: DE-JNJFOC-20080302358

PATIENT
  Sex: Female

DRUGS (2)
  1. REMICADE [Suspect]
     Indication: PSORIASIS
     Route: 042
  2. METHOTREXATE [Concomitant]
     Indication: PSORIASIS

REACTIONS (6)
  - ARTHRALGIA [None]
  - ARTHRITIS [None]
  - HYPERSENSITIVITY [None]
  - MUSCLE MASS [None]
  - PRURITUS [None]
  - RASH [None]
